FAERS Safety Report 17163417 (Version 3)
Quarter: 2020Q1

REPORT INFORMATION
  Report Type: Report from Study
  Country: US (occurrence: US)
  Receive Date: 20191217
  Receipt Date: 20200319
  Transmission Date: 20200409
  Serious: Yes (Hospitalization)
  Sender: FDA-Public Use
  Company Number: US-SAREPTA THERAPEUTICS INC.-SRP2019-000598

PATIENT
  Age: 23 Year
  Sex: Male

DRUGS (7)
  1. MARIJUANA [Concomitant]
     Active Substance: CANNABIS SATIVA SUBSP. INDICA TOP
     Indication: PRODUCT USED FOR UNKNOWN INDICATION
     Dosage: ON BACK
     Route: 061
  2. ZOLOFT [Concomitant]
     Active Substance: SERTRALINE HYDROCHLORIDE
     Indication: PRODUCT USED FOR UNKNOWN INDICATION
     Dosage: 50 MG, UNK
     Route: 048
  3. DEFLAZACORT [Concomitant]
     Active Substance: DEFLAZACORT
     Indication: CORTISOL DEFICIENCY
     Dosage: 30 MG, UNK
  4. MARIJUANA [Concomitant]
     Active Substance: CANNABIS SATIVA SUBSP. INDICA TOP
     Indication: DUCHENNE MUSCULAR DYSTROPHY
     Dosage: 25 MG, AT BEDTIME
  5. HEPARIN FLUSH [Concomitant]
     Active Substance: HEPARIN SODIUM
     Dosage: 100 UNITS/ML
  6. ETEPLIRSEN [Suspect]
     Active Substance: ETEPLIRSEN
     Indication: DUCHENNE MUSCULAR DYSTROPHY
     Dosage: 1400 MG, WEEKLY
     Route: 042
     Dates: start: 20180405
  7. LISINOPRIL. [Concomitant]
     Active Substance: LISINOPRIL
     Indication: CARDIOMYOPATHY
     Dosage: 5 MG, UNK
     Route: 048

REACTIONS (6)
  - Acute respiratory failure [Recovered/Resolved]
  - Vitamin D deficiency [Unknown]
  - Cortisol deficiency [Unknown]
  - Obstructive airways disorder [Unknown]
  - Affective disorder [Unknown]
  - Product dose omission [Unknown]

NARRATIVE: CASE EVENT DATE: 20181108
